FAERS Safety Report 21322349 (Version 1)
Quarter: 2022Q3

REPORT INFORMATION
  Report Type: Spontaneous
  Country: US (occurrence: None)
  Receive Date: 20220910
  Receipt Date: 20220910
  Transmission Date: 20221027
  Serious: Yes (Hospitalization)
  Sender: FDA-Public Use
  Company Number: None

PATIENT
  Sex: Male
  Weight: 77 kg

DRUGS (5)
  1. CARBOPLATIN [Suspect]
     Active Substance: CARBOPLATIN
  2. ETOPOSIDE [Concomitant]
     Active Substance: ETOPOSIDE
  3. FILGRASTIM [Concomitant]
     Active Substance: FILGRASTIM
  4. IFOSFAMIDE [Concomitant]
     Active Substance: IFOSFAMIDE
  5. TAXOL [Concomitant]
     Active Substance: PACLITAXEL

REACTIONS (3)
  - Disease progression [None]
  - Cerebral haemorrhage [None]
  - Metastasis [None]

NARRATIVE: CASE EVENT DATE: 20220902
